FAERS Safety Report 10353077 (Version 1)
Quarter: 2014Q3

REPORT INFORMATION
  Report Type: Report from Study
  Country: CN (occurrence: CN)
  Receive Date: 20140730
  Receipt Date: 20140730
  Transmission Date: 20150326
  Serious: Yes (Death)
  Sender: FDA-Public Use
  Company Number: CN-BAXTER-2014BAX041834

PATIENT

DRUGS (10)
  1. METHOTREXATE [Suspect]
     Active Substance: METHOTREXATE
     Indication: APLASTIC ANAEMIA
     Dosage: SHORT COURSE ON DAY 1
     Route: 042
  2. METHOTREXATE [Suspect]
     Active Substance: METHOTREXATE
     Dosage: 3, 6, AND 11
     Route: 042
  3. ANTI-THYMOCYTE GLOBULIN (RABBIT) NOS [Suspect]
     Active Substance: LAPINE T-LYMPHOCYTE IMMUNE GLOBULIN
     Indication: APLASTIC ANAEMIA
     Dosage: DAYS -5 TO -1
     Route: 065
  4. METHYLPREDNISOLONE [Suspect]
     Active Substance: METHYLPREDNISOLONE
     Indication: APLASTIC ANAEMIA
     Dosage: 1-2 MG/KG
     Route: 065
  5. HPC, CORD BLOOD [Suspect]
     Active Substance: HUMAN CORD BLOOD HEMATOPOIETIC PROGENITOR CELL
     Indication: APLASTIC ANAEMIA
     Dosage: ONE ON DAY 0 WAS TRANSFUSED
     Route: 065
  6. METHYLPREDNISOLONE [Suspect]
     Active Substance: METHYLPREDNISOLONE
  7. MYCOPHENOLATE MOFETIL. [Suspect]
     Active Substance: MYCOPHENOLATE MOFETIL
     Indication: APLASTIC ANAEMIA
     Dosage: FROM DAY 1 TO DAY 28
     Route: 042
  8. CYCLOSPORINE A [Suspect]
     Active Substance: CYCLOSPORINE
     Dosage: BEGINNING DAY -1
     Route: 048
  9. ENDOXAN [Suspect]
     Active Substance: CYCLOPHOSPHAMIDE
     Indication: APLASTIC ANAEMIA
     Dosage: DIVIDED IN 2 DAILY DOSES FROM DAY -3 TO DAY -2
     Route: 042
  10. CYCLOSPORINE A [Suspect]
     Active Substance: CYCLOSPORINE
     Indication: APLASTIC ANAEMIA
     Route: 042

REACTIONS (1)
  - Serum sickness [Fatal]
